APPROVED DRUG PRODUCT: TAPENTADOL HYDROCHLORIDE
Active Ingredient: TAPENTADOL HYDROCHLORIDE
Strength: EQ 50MG BASE
Dosage Form/Route: TABLET;ORAL
Application: A214378 | Product #001 | TE Code: AB
Applicant: HUMANWELL PHARMACEUTICAL US INC
Approved: Jan 27, 2026 | RLD: No | RS: No | Type: RX